FAERS Safety Report 14301102 (Version 1)
Quarter: 2017Q4

REPORT INFORMATION
  Report Type: Spontaneous
  Country: US (occurrence: US)
  Receive Date: 20171213
  Receipt Date: 20171213
  Transmission Date: 20180321
  Serious: Yes (Disabling)
  Sender: FDA-Public Use
  Company Number: None

PATIENT
  Sex: Female
  Weight: 52.16 kg

DRUGS (4)
  1. CALCIUM [Concomitant]
     Active Substance: CALCIUM
  2. VITAMIN B12 [Concomitant]
     Active Substance: CYANOCOBALAMIN
  3. VITAMIN D [Concomitant]
     Active Substance: CHOLECALCIFEROL
  4. MIRENA [Suspect]
     Active Substance: LEVONORGESTREL

REACTIONS (5)
  - Impaired work ability [None]
  - Impaired self-care [None]
  - Muscle disorder [None]
  - Arthritis [None]
  - Autoimmune disorder [None]

NARRATIVE: CASE EVENT DATE: 20151001
